FAERS Safety Report 21384328 (Version 1)
Quarter: 2022Q3

REPORT INFORMATION
  Report Type: Spontaneous
  Country: IL (occurrence: None)
  Receive Date: 20220928
  Receipt Date: 20220928
  Transmission Date: 20221027
  Serious: Yes (Death)
  Sender: FDA-Public Use
  Company Number: IL-ROCHE-3165679

PATIENT
  Age: 77 Year
  Sex: Male

DRUGS (8)
  1. RITUXIMAB [Suspect]
     Active Substance: RITUXIMAB
     Indication: Diffuse large B-cell lymphoma
     Dosage: 4 CYCLES
     Route: 065
     Dates: start: 20210501, end: 20210701
  2. CYCLOPHOSPHAMIDE [Suspect]
     Active Substance: CYCLOPHOSPHAMIDE
     Indication: Diffuse large B-cell lymphoma
     Dosage: 4 CYCLES
     Route: 065
     Dates: start: 20210501, end: 20210701
  3. DOXORUBICIN HYDROCHLORIDE [Suspect]
     Active Substance: DOXORUBICIN HYDROCHLORIDE
     Indication: Diffuse large B-cell lymphoma
     Dosage: 4 CYCLES
     Route: 065
     Dates: start: 20210501, end: 20210701
  4. VINCRISTINE [Suspect]
     Active Substance: VINCRISTINE
     Indication: Diffuse large B-cell lymphoma
     Dosage: 4 CYCLES
     Route: 065
     Dates: start: 20210501, end: 20210701
  5. PREDNISOLONE [Suspect]
     Active Substance: PREDNISOLONE
     Indication: Diffuse large B-cell lymphoma
     Dosage: 4 CYCLES
     Route: 065
     Dates: start: 20210501, end: 20210701
  6. POLATUZUMAB VEDOTIN [Suspect]
     Active Substance: POLATUZUMAB VEDOTIN
     Indication: Diffuse large B-cell lymphoma
     Dosage: 4 CYCLES
     Route: 065
     Dates: start: 20220501, end: 20220701
  7. BENDAMUSTINE [Suspect]
     Active Substance: BENDAMUSTINE
     Indication: Diffuse large B-cell lymphoma
     Dosage: 4 CYCLES
     Route: 065
     Dates: start: 20220501, end: 20220701
  8. ADO-TRASTUZUMAB EMTANSINE [Suspect]
     Active Substance: ADO-TRASTUZUMAB EMTANSINE
     Indication: Diffuse large B-cell lymphoma
     Route: 065
     Dates: start: 20211201, end: 20211201

REACTIONS (5)
  - Death [Fatal]
  - Disease progression [Unknown]
  - Ill-defined disorder [Unknown]
  - Blood lactate dehydrogenase increased [Unknown]
  - Ill-defined disorder [Unknown]
